FAERS Safety Report 20544041 (Version 2)
Quarter: 2022Q3

REPORT INFORMATION
  Report Type: Report from Study
  Country: US (occurrence: US)
  Receive Date: 20220303
  Receipt Date: 20220705
  Transmission Date: 20221026
  Serious: Yes (Hospitalization)
  Sender: FDA-Public Use
  Company Number: US-ORPHANEU-2022000755

PATIENT

DRUGS (2)
  1. CARBAGLU [Suspect]
     Active Substance: CARGLUMIC ACID
     Indication: Methylmalonic aciduria
     Dosage: 400 MILLIGRAM, BID
     Dates: start: 20201208
  2. CARBAGLU [Suspect]
     Active Substance: CARGLUMIC ACID
     Dosage: 400 MILLIGRAM, BID (SOME TIMES AT HOSPITAL ALSO ADMINISTERED TID)

REACTIONS (4)
  - Somnolence [Unknown]
  - Vomiting [Unknown]
  - Blood iron decreased [Unknown]
  - Device occlusion [Recovered/Resolved]
